FAERS Safety Report 6868130-2 (Version None)
Quarter: 2010Q3

REPORT INFORMATION
  Report Type: 
  Country: None (occurrence: None)
  Receive Date: 20100722
  Receipt Date: 20080519
  Transmission Date: 20110219
  Serious: No
  Sender: FDA-Public Use
  Company Number: US-PFIZER INC-2008043290

PATIENT
  Sex: Male
  Weight: 77.11 kg

DRUGS (4)
  1. CHANTIX [Suspect]
     Indication: SMOKING CESSATION THERAPY
     Route: 048
     Dates: start: 20080301, end: 20080301
  2. VYTORIN [Concomitant]
  3. CETIRIZINE HCL AND PSEUDOEPHEDRINE [Concomitant]
  4. AMLODIPINE [Concomitant]

REACTIONS (2)
  - ABNORMAL DREAMS [None]
  - IMPAIRED WORK ABILITY [None]
